FAERS Safety Report 10102090 (Version 2)
Quarter: 2014Q2

REPORT INFORMATION
  Report Type: Spontaneous
  Country: PT (occurrence: PT)
  Receive Date: 20140424
  Receipt Date: 20140424
  Transmission Date: 20141212
  Serious: Yes (Hospitalization)
  Sender: FDA-Public Use
  Company Number: PT-SA-2013SA130261

PATIENT
  Sex: Female

DRUGS (7)
  1. LOVENOX [Suspect]
     Indication: PRODUCT USED FOR UNKNOWN INDICATION
     Route: 058
     Dates: start: 20131122, end: 20131128
  2. PIPERACILLIN/TAZOBACTAM [Interacting]
     Indication: PNEUMONIA
     Route: 042
     Dates: start: 20131122, end: 20131126
  3. SINEMET [Concomitant]
     Dosage: STRENGTH 25/100
     Route: 048
     Dates: start: 20131122
  4. HALDOL [Concomitant]
     Dosage: FORM ORAL SOLUTION
     Route: 048
     Dates: start: 20131122
  5. LAEVOLAC [Concomitant]
     Route: 048
     Dates: start: 20131122
  6. RISPERIDONE [Concomitant]
     Route: 048
     Dates: start: 20131122
  7. RANITIDINE HYDROCHLORIDE [Concomitant]
     Dates: start: 20131122, end: 20131125

REACTIONS (6)
  - Generalised tonic-clonic seizure [Recovered/Resolved]
  - Thrombocytopenia [Recovered/Resolved]
  - Drug interaction [Unknown]
  - Epistaxis [Recovered/Resolved]
  - Subdural haematoma [Recovered/Resolved with Sequelae]
  - Altered state of consciousness [Recovered/Resolved]
